FAERS Safety Report 19207720 (Version 5)
Quarter: 2023Q4

REPORT INFORMATION
  Report Type: Spontaneous
  Country: US (occurrence: US)
  Receive Date: 20210503
  Receipt Date: 20231129
  Transmission Date: 20240109
  Serious: No
  Sender: FDA-Public Use
  Company Number: US-PFIZER INC-2021198465

PATIENT
  Age: 68 Year
  Sex: Female

DRUGS (1)
  1. IBRANCE [Suspect]
     Active Substance: PALBOCICLIB
     Dosage: 125 MG

REACTIONS (6)
  - Hypoacusis [Unknown]
  - Dyspnoea [Unknown]
  - Malaise [Unknown]
  - Emotional disorder [Unknown]
  - Neoplasm progression [Unknown]
  - Decreased immune responsiveness [Unknown]
